FAERS Safety Report 20012524 (Version 2)
Quarter: 2022Q2

REPORT INFORMATION
  Report Type: Other
  Country: US (occurrence: None)
  Receive Date: 20211029
  Receipt Date: 20220512
  Transmission Date: 20220720
  Serious: Yes (Hospitalization)
  Sender: FDA-Public Use
  Company Number: US-ROCHE-2942998

PATIENT
  Age: 87 Year
  Sex: Male
  Weight: 88.5 kg

DRUGS (22)
  1. RITUXAN [Suspect]
     Active Substance: RITUXIMAB
     Indication: Acquired haemophilia
     Dosage: DATE OF TREATMENT 04/OCT/2021, 18/OCT/2021
     Route: 042
  2. RITUXAN [Suspect]
     Active Substance: RITUXIMAB
     Indication: Haemorrhagic disorder
  3. BASAGLAR KWIKPEN [Concomitant]
     Active Substance: INSULIN GLARGINE
     Dosage: 20 UNITS AT BEDTIME ?PATIENT TAKING DIFFERENTLY 10 UNITS
     Route: 058
  4. SENNA [Concomitant]
     Active Substance: SENNA LEAF\SENNOSIDES\SENNOSIDES A AND B
     Dosage: 2 TAB AT NIGHT
  5. JANUVIA [Concomitant]
     Active Substance: SITAGLIPTIN PHOSPHATE
     Route: 048
  6. VITAMIN D3 [Concomitant]
     Active Substance: CHOLECALCIFEROL
     Dosage: 2000 UNIT
     Route: 048
  7. NORVASC [Concomitant]
     Active Substance: AMLODIPINE BESYLATE
     Route: 048
  8. LIPITOR [Concomitant]
     Active Substance: ATORVASTATIN CALCIUM
     Route: 048
  9. COMBIGAN [Concomitant]
     Active Substance: BRIMONIDINE TARTRATE\TIMOLOL MALEATE
     Dosage: IN LEFT 1 DOP
  10. FERROUS SULFATE [Concomitant]
     Active Substance: FERROUS SULFATE
     Route: 048
  11. PROSCAR [Concomitant]
     Active Substance: FINASTERIDE
     Dosage: AT BEDTIME
     Route: 048
  12. LASIX [Concomitant]
     Active Substance: FUROSEMIDE
     Route: 048
  13. NEURONTIN [Concomitant]
     Active Substance: GABAPENTIN
     Route: 048
  14. MELATONIN [Concomitant]
     Active Substance: MELATONIN
     Route: 048
  15. SODIUM BICARBONATE [Concomitant]
     Active Substance: SODIUM BICARBONATE
     Route: 048
  16. TRIAMCINOLONE ACETONIDE [Concomitant]
     Active Substance: TRIAMCINOLONE ACETONIDE
     Route: 061
  17. ACETAMINOPHEN [Concomitant]
     Active Substance: ACETAMINOPHEN
     Route: 048
  18. ACETAMINOPHEN [Concomitant]
     Active Substance: ACETAMINOPHEN
     Dosage: DATE OF TREATMENT 02/OCT/2021, 03/OCT/2021, 04/OCT/2021, 05/OCT/2021 AND 06/OCT/2021
     Route: 048
  19. EMICIZUMAB [Concomitant]
     Active Substance: EMICIZUMAB
  20. LIDOCAINE [Concomitant]
     Active Substance: LIDOCAINE
  21. ESOMEPRAZOLE [Concomitant]
     Active Substance: ESOMEPRAZOLE
     Dosage: DATE OF TREATMENT 02/OCT/2021, 03/OCT/2021, 04/OCT/2021, 05/OCT/2021 AND 06/OCT/2021
  22. AMLODIPINE [Concomitant]
     Active Substance: AMLODIPINE BESYLATE
     Dosage: DATE OF TREATMENT 05/OCT/2021 AND 06/OCT/2021
     Route: 048

REACTIONS (11)
  - Off label use [Unknown]
  - Urinary tract infection [Unknown]
  - Pneumonia [Unknown]
  - Leukopenia [Unknown]
  - Anaemia [Unknown]
  - Haemorrhage [Recovered/Resolved]
  - Ecchymosis [Unknown]
  - Activated partial thromboplastin time prolonged [Unknown]
  - Coagulation factor VIII level decreased [Unknown]
  - Arthralgia [Recovered/Resolved]
  - Faeces hard [Unknown]

NARRATIVE: CASE EVENT DATE: 20201001
